FAERS Safety Report 12520452 (Version 1)
Quarter: 2016Q3

REPORT INFORMATION
  Report Type: Spontaneous
  Country: FI (occurrence: FI)
  Receive Date: 20160701
  Receipt Date: 20160701
  Transmission Date: 20161109
  Serious: Yes (Other)
  Sender: FDA-Public Use
  Company Number: FI-009507513-1606FIN011121

PATIENT
  Age: 37 Year
  Sex: Female

DRUGS (3)
  1. NEXPLANON [Suspect]
     Active Substance: ETONOGESTREL
     Indication: CONTRACEPTION
     Dosage: UNK
     Dates: start: 201112
  2. SOMAC [Concomitant]
     Active Substance: PANTOPRAZOLE SODIUM
     Dosage: UNK
  3. ARCOXIA 90 MG [Concomitant]
     Indication: OSTEOARTHRITIS
     Dosage: 90 MG, ONCE A DAY
     Route: 048
     Dates: start: 20160614, end: 20160616

REACTIONS (6)
  - Osteoarthritis [Unknown]
  - Amenorrhoea [Not Recovered/Not Resolved]
  - Menstrual disorder [Recovered/Resolved]
  - Epilepsy [Recovered/Resolved]
  - Incorrect drug administration duration [Not Recovered/Not Resolved]
  - Overdose [Not Recovered/Not Resolved]

NARRATIVE: CASE EVENT DATE: 201112
